FAERS Safety Report 15369425 (Version 1)
Quarter: 2018Q3

REPORT INFORMATION
  Report Type: Spontaneous
  Country: US (occurrence: US)
  Receive Date: 20180911
  Receipt Date: 20180911
  Transmission Date: 20181010
  Serious: No
  Sender: FDA-Public Use
  Company Number: US-JNJFOC-20180833124

PATIENT
  Age: 67 Year
  Sex: Female
  Weight: 105.69 kg

DRUGS (6)
  1. NIZORAL A?D [Suspect]
     Active Substance: KETOCONAZOLE
     Route: 061
  2. BABY ASPIRIN [Concomitant]
     Active Substance: ASPIRIN
     Indication: CORONARY ARTERY OCCLUSION
     Dosage: FOR 2 YEARS
     Route: 065
  3. INSULIN [Concomitant]
     Active Substance: INSULIN NOS
     Dosage: FOR 25 YEARS
     Route: 065
  4. NIZORAL A?D [Suspect]
     Active Substance: KETOCONAZOLE
     Indication: DANDRUFF
     Dosage: HALF DOLLAR SIZE
     Route: 061
     Dates: start: 20180220, end: 20180817
  5. XANAX [Concomitant]
     Active Substance: ALPRAZOLAM
     Indication: TOURETTE^S DISORDER
     Route: 065
     Dates: start: 2011
  6. SIMVASTATIN. [Concomitant]
     Active Substance: SIMVASTATIN
     Indication: BLOOD CHOLESTEROL INCREASED
     Dosage: FOR 2 YEARS
     Route: 065

REACTIONS (1)
  - Pruritus [Not Recovered/Not Resolved]

NARRATIVE: CASE EVENT DATE: 20180720
